FAERS Safety Report 11408527 (Version 2)
Quarter: 2015Q4

REPORT INFORMATION
  Report Type: Spontaneous
  Country: US (occurrence: US)
  Receive Date: 20150822
  Receipt Date: 20151005
  Transmission Date: 20160304
  Serious: No
  Sender: FDA-Public Use
  Company Number: US-009507513-1508USA005725

PATIENT
  Sex: Female

DRUGS (2)
  1. BETADINE [Suspect]
     Active Substance: POVIDONE-IODINE
  2. NEXPLANON [Suspect]
     Active Substance: ETONOGESTREL
     Indication: CONTRACEPTION
     Dosage: UNK
     Route: 059
     Dates: start: 2015

REACTIONS (1)
  - Implant site reaction [Recovered/Resolved]

NARRATIVE: CASE EVENT DATE: 2015
